FAERS Safety Report 25494340 (Version 1)
Quarter: 2025Q2

REPORT INFORMATION
  Report Type: Spontaneous
  Country: IT (occurrence: IT)
  Receive Date: 20250630
  Receipt Date: 20250630
  Transmission Date: 20250717
  Serious: Yes (Other)
  Sender: SAMSUNG BIOEPIS
  Company Number: IT-SAMSUNG BIOEPIS-SB-2025-22058

PATIENT

DRUGS (1)
  1. INFLIXIMAB [Suspect]
     Active Substance: INFLIXIMAB
     Indication: Inflammatory bowel disease

REACTIONS (4)
  - Cholangitis sclerosing [Unknown]
  - Autoimmune cholangitis [Unknown]
  - Drug ineffective [Unknown]
  - Off label use [Unknown]
